FAERS Safety Report 6480389-2 (Version None)
Quarter: 2009Q4

REPORT INFORMATION
  Report Type: 
  Country: None (occurrence: None)
  Receive Date: 20091208
  Receipt Date: 20091104
  Transmission Date: 20100525
  Serious: Yes (Hospitalization)
  Sender: FDA-Public Use
  Company Number: GXKR2009DE09060

PATIENT
  Sex: Female
  Weight: 61 kg

DRUGS (4)
  1. RISPERIDON HEXAL (NGX) [Suspect]
     Indication: SCHIZOPHRENIA, PARANOID TYPE
     Dosage: UNK
     Route: 048
  2. RISPERIDON HEXAL (NGX) [Suspect]
     Dosage: 3 MG, QD
     Route: 048
  3. IBUPROFEN [Concomitant]
  4. FENTANYL [Concomitant]

REACTIONS (5)
  - BLOOD PROLACTIN INCREASED [None]
  - GALACTORRHOEA [None]
  - INTERNAL FIXATION OF FRACTURE [None]
  - OSTEOPOROSIS [None]
  - THORACIC VERTEBRAL FRACTURE [None]
